FAERS Safety Report 26099846 (Version 1)
Quarter: 2025Q4

REPORT INFORMATION
  Report Type: Spontaneous
  Country: TR (occurrence: TR)
  Receive Date: 20251128
  Receipt Date: 20251128
  Transmission Date: 20260117
  Serious: Yes (Life-Threatening, Other)
  Sender: ALKEM
  Company Number: TR-ALKEM LABORATORIES LIMITED-TR-ALKEM-2025-06955

PATIENT
  Age: 32 Year
  Sex: Male

DRUGS (6)
  1. OLANZAPINE [Suspect]
     Active Substance: OLANZAPINE
     Indication: Bipolar disorder
     Dosage: 15 MG/DAY
     Route: 065
  2. OLANZAPINE [Suspect]
     Active Substance: OLANZAPINE
     Indication: Extrapyramidal disorder
  3. OLANZAPINE [Suspect]
     Active Substance: OLANZAPINE
     Indication: Hostility
  4. CLOZAPINE [Suspect]
     Active Substance: CLOZAPINE
     Indication: Hostility
     Dosage: 125 MG/DAY
     Route: 065
  5. CLOZAPINE [Suspect]
     Active Substance: CLOZAPINE
     Indication: Bipolar disorder
  6. CLOZAPINE [Suspect]
     Active Substance: CLOZAPINE
     Indication: Extrapyramidal disorder

REACTIONS (2)
  - C-reactive protein increased [Unknown]
  - Sedation [Unknown]
